FAERS Safety Report 21487040 (Version 2)
Quarter: 2022Q4

REPORT INFORMATION
  Report Type: Report from Study
  Country: CN (occurrence: CN)
  Receive Date: 20221020
  Receipt Date: 20221108
  Transmission Date: 20230113
  Serious: Yes (Life-Threatening)
  Sender: FDA-Public Use
  Company Number: CN-TEVA-2021-CN-1961000

PATIENT

DRUGS (3)
  1. BENDAMUSTINE [Suspect]
     Active Substance: BENDAMUSTINE
     Indication: Diffuse large B-cell lymphoma
     Dosage: ON DAY 2 AND DAY 3 OF FIRST COURSE OF TREATMENT FOLLOWED BY ON DAY 1 AND DAY 2 OF THE 2ND TO 6TH ...
     Route: 041
  2. RITUXIMAB [Suspect]
     Active Substance: RITUXIMAB
     Indication: Diffuse large B-cell lymphoma
     Dosage: ON DAY 1 OF EACH COURSE OF 21 DAYS (CYCLE)
     Route: 041
  3. POLATUZUMAB VEDOTIN [Suspect]
     Active Substance: POLATUZUMAB VEDOTIN
     Indication: Diffuse large B-cell lymphoma
     Dosage: ON DAY 2 OF THE 1ST TREATMENT COURSE AND DAY1 OF THE 2ND TO 6TH TREATMENT COURSES (CYCLES)
     Route: 041

REACTIONS (2)
  - Haemophagocytic lymphohistiocytosis [Recovered/Resolved]
  - Off label use [Unknown]
